FAERS Safety Report 5099927-X (Version None)
Quarter: 2006Q3

REPORT INFORMATION
  Report Type: 
  Country: None (occurrence: None)
  Receive Date: 20060906
  Receipt Date: 20060821
  Transmission Date: 20061208
  Serious: Yes (Death, Hospitalization)
  Sender: FDA-Public Use
  Company Number: ERP06000058

PATIENT
  Age: 48 Year
  Sex: Female

DRUGS (6)
  1. DANTRIUM (DANTROLENE SODIUM) CALCIUM UNKNOWN MG [Suspect]
     Dosage: 150  MG, DAILY, ORAL
     Route: 048
     Dates: start: 20040101
  2. XANAX [Suspect]
     Dosage: ORAL
     Route: 048
  3. TRAMADOL HCL [Suspect]
  4. ATEPADENE(DEOXYRIBONUCLEIC ACID, ADENOSINE PHOSPHATE, SODIUM SALT) [Suspect]
  5. DAFALGAN(PARACETAMOL) [Suspect]
     Dosage: 500 MG, DAILY
  6. REVAXIS(TETANUS TOXOID, POLIOVIRUS VACCINE, DIPTHERIA TOXOID) [Suspect]
     Dates: start: 20060713, end: 20060713

REACTIONS (7)
  - ABDOMINAL PAIN [None]
  - FATIGUE [None]
  - HAEMOGLOBIN DECREASED [None]
  - HEPATITIS FULMINANT [None]
  - METABOLIC ACIDOSIS [None]
  - RENAL FAILURE ACUTE [None]
  - RHABDOMYOLYSIS [None]
